FAERS Safety Report 14170090 (Version 1)
Quarter: 2017Q4

REPORT INFORMATION
  Report Type: Spontaneous
  Country: US (occurrence: US)
  Receive Date: 20171108
  Receipt Date: 20171108
  Transmission Date: 20180321
  Serious: Yes (Other)
  Sender: FDA-Public Use
  Company Number: US-PFIZER INC-2017474825

PATIENT
  Age: 22 Year
  Sex: Female

DRUGS (2)
  1. ANTILYMPHOCYTE IMMUNOGLOBULINS [Suspect]
     Active Substance: THYMOCYTE IMMUNE GLOBULIN NOS
     Dosage: 2000 MG, UNK (2000 MG EATG AT A CONTINUOUS INFUSION RATE OF 90 MG/HR)
  2. ANTILYMPHOCYTE IMMUNOGLOBULINS [Suspect]
     Active Substance: THYMOCYTE IMMUNE GLOBULIN NOS
     Indication: APLASTIC ANAEMIA
     Dosage: TOTAL DOSE OF 8000 MG

REACTIONS (2)
  - Type III immune complex mediated reaction [Recovered/Resolved]
  - Rash erythematous [Recovered/Resolved]
